FAERS Safety Report 4812498-5 (Version None)
Quarter: 2005Q4

REPORT INFORMATION
  Report Type: 
  Country: None (occurrence: None)
  Receive Date: 20051028
  Receipt Date: 20050208
  Transmission Date: 20060501
  Serious: No
  Sender: FDA-Public Use
  Company Number: US-GLAXOSMITHKLINE-A0544499A

PATIENT
  Age: 69 Year
  Sex: Female

DRUGS (7)
  1. ADVAIR DISKUS 100/50 [Suspect]
     Indication: ASTHMA
     Dosage: 2PUFF TWICE PER DAY
     Route: 055
     Dates: start: 20040401, end: 20050201
  2. ALBUTEROL [Concomitant]
  3. ATROVENT [Concomitant]
  4. TYLENOL (CAPLET) [Concomitant]
  5. CODEINE [Concomitant]
  6. UNKNOWN MEDICATION [Concomitant]
  7. ZANTAC [Concomitant]

REACTIONS (5)
  - ASTHENIA [None]
  - BLOOD PRESSURE INCREASED [None]
  - HEADACHE [None]
  - MYALGIA [None]
  - THROAT TIGHTNESS [None]
